FAERS Safety Report 22274663 (Version 3)
Quarter: 2023Q2

REPORT INFORMATION
  Report Type: Spontaneous
  Country: CA (occurrence: CA)
  Receive Date: 20230502
  Receipt Date: 20230628
  Transmission Date: 20230722
  Serious: Yes (Other)
  Sender: FDA-Public Use
  Company Number: CA-PFIZER INC-202300173852

PATIENT
  Age: 45 Year
  Sex: Female

DRUGS (2)
  1. INFLIXIMAB [Suspect]
     Active Substance: INFLIXIMAB
     Dosage: 10 MG/KG
  2. METHOTREXATE SODIUM [Suspect]
     Active Substance: METHOTREXATE SODIUM
     Dosage: FREQUENCY UNSPECIFIED
     Route: 048

REACTIONS (4)
  - Anal ulcer [Unknown]
  - Colitis [Unknown]
  - Anal stenosis [Unknown]
  - Intestinal fibrosis [Unknown]
